FAERS Safety Report 9287365 (Version 1)
Quarter: 2013Q2

REPORT INFORMATION
  Report Type: Spontaneous
  Country: JP (occurrence: JP)
  Receive Date: 20130514
  Receipt Date: 20130514
  Transmission Date: 20140414
  Serious: Yes (Hospitalization)
  Sender: FDA-Public Use
  Company Number: JP-AMGEN-JPNSP2013027034

PATIENT
  Age: 66 Year
  Sex: Female
  Weight: 52 kg

DRUGS (9)
  1. VECTIBIX [Suspect]
     Indication: COLON CANCER
     Dosage: UNK
     Route: 041
     Dates: start: 2012, end: 2012
  2. VECTIBIX [Suspect]
     Dosage: 300 MG, Q4WK
     Route: 041
     Dates: start: 20130218, end: 20130218
  3. TOPOTECIN [Suspect]
     Indication: COLON CANCER
     Dosage: UNK
     Route: 041
     Dates: start: 2012, end: 2012
  4. TOPOTECIN [Suspect]
     Dosage: UNK UNK, Q2WK
     Route: 041
     Dates: start: 20120107
  5. TOPOTECIN [Suspect]
     Dosage: 200 MG, Q4WK
     Route: 041
     Dates: start: 20130218, end: 20130218
  6. LEVOFOLINATE [Suspect]
     Indication: COLON CANCER
     Dosage: UNK UNK, Q2WK
     Route: 041
     Dates: start: 20120107
  7. LEVOFOLINATE [Suspect]
     Dosage: 300 MG, Q4WK
     Route: 041
     Dates: start: 20130218, end: 20130218
  8. 5-FU /00098801/ [Suspect]
     Indication: COLON CANCER
     Dosage: UNK UNK, Q2WK
     Route: 042
     Dates: start: 20120107
  9. 5-FU /00098801/ [Suspect]
     Dosage: 500 MG, Q4WK
     Route: 042
     Dates: start: 20130218, end: 20130218

REACTIONS (1)
  - Pulmonary alveolar haemorrhage [Recovered/Resolved with Sequelae]
